FAERS Safety Report 21542039 (Version 1)
Quarter: 2022Q4

REPORT INFORMATION
  Report Type: Spontaneous
  Country: US (occurrence: US)
  Receive Date: 20221102
  Receipt Date: 20221102
  Transmission Date: 20230113
  Serious: Yes (Other)
  Sender: FDA-Public Use
  Company Number: US-009507513-2211USA000478

PATIENT
  Sex: Male

DRUGS (9)
  1. KEYTRUDA [Suspect]
     Active Substance: PEMBROLIZUMAB
     Indication: Metastatic malignant melanoma
     Dosage: UNK
     Route: 065
  2. NIVOLUMAB [Suspect]
     Active Substance: NIVOLUMAB
     Indication: Metastatic malignant melanoma
     Dosage: UNK
     Route: 065
  3. IPILIMUMAB [Suspect]
     Active Substance: IPILIMUMAB
     Indication: Metastatic malignant melanoma
     Dosage: UNK
     Route: 065
  4. VEMURAFENIB [Suspect]
     Active Substance: VEMURAFENIB
     Indication: Metastatic malignant melanoma
     Dosage: UNK
     Route: 065
  5. COBIMETINIB [Concomitant]
     Active Substance: COBIMETINIB
     Dosage: UNK
  6. TRAMETINIB [Concomitant]
     Active Substance: TRAMETINIB
     Dosage: UNK
  7. ENCORAFENIB [Concomitant]
     Active Substance: ENCORAFENIB
     Dosage: UNK
  8. DABRAFENIB [Concomitant]
     Active Substance: DABRAFENIB
     Dosage: UNK
  9. BINIMETINIB [Concomitant]
     Active Substance: BINIMETINIB

REACTIONS (1)
  - Drug reaction with eosinophilia and systemic symptoms [Recovering/Resolving]
